FAERS Safety Report 25008691 (Version 1)
Quarter: 2025Q1

REPORT INFORMATION
  Report Type: Spontaneous
  Country: US (occurrence: None)
  Receive Date: 20250224
  Receipt Date: 20250224
  Transmission Date: 20250409
  Serious: Yes (Death)
  Sender: FDA-CTU
  Company Number: None

PATIENT
  Age: 81 Year
  Sex: Male

DRUGS (1)
  1. WARFARIN [Suspect]
     Active Substance: WARFARIN

REACTIONS (3)
  - Unresponsive to stimuli [None]
  - Haemorrhagic stroke [None]
  - Hypertensive emergency [None]

NARRATIVE: CASE EVENT DATE: 20231202
